FAERS Safety Report 16872047 (Version 1)
Quarter: 2019Q4

REPORT INFORMATION
  Report Type: Spontaneous
  Country: US (occurrence: US)
  Receive Date: 20191001
  Receipt Date: 20191001
  Transmission Date: 20200122
  Serious: No
  Sender: FDA-Public Use
  Company Number: US-MTPC-MTDA2019-0073041

PATIENT

DRUGS (2)
  1. RADICAVA [Suspect]
     Active Substance: EDARAVONE
     Indication: AMYOTROPHIC LATERAL SCLEROSIS
     Dosage: UNKNOWN, ON FOR 14 DAYS AND THEN 14 DAYS OFF
     Route: 042
  2. RADICAVA [Suspect]
     Active Substance: EDARAVONE
     Dosage: UNKNOWN, 10 DAYS ON AND 14 DAYS OFF
     Route: 042

REACTIONS (3)
  - Drug ineffective [Unknown]
  - Disease progression [Unknown]
  - Scar [Unknown]
